FAERS Safety Report 4555793-X (Version None)
Quarter: 2005Q1

REPORT INFORMATION
  Report Type: 
  Country: None (occurrence: None)
  Receive Date: 20050118
  Receipt Date: 20041015
  Transmission Date: 20050727
  Serious: No
  Sender: FDA-Public Use
  Company Number: A03200403486

PATIENT
  Age: 75 Year
  Sex: Male

DRUGS (8)
  1. UROXATRAL [Suspect]
     Indication: BENIGN PROSTATIC HYPERPLASIA
     Dosage: 10 MG OD ORAL
     Route: 048
     Dates: start: 20041012, end: 20041012
  2. LORAZEPAM [Concomitant]
  3. LISINOPRIL [Concomitant]
  4. GABAPENTIN [Concomitant]
  5. METOPROLOL SUCCINATE [Concomitant]
  6. LEVOTHYROXINE SODIUM [Concomitant]
  7. ACETYLSALICYLIC ACID SRT [Concomitant]
  8. ISOSORBIDE [Concomitant]

REACTIONS (2)
  - DYSPNOEA [None]
  - HEAD DISCOMFORT [None]
